FAERS Safety Report 24389254 (Version 11)
Quarter: 2025Q2

REPORT INFORMATION
  Report Type: Spontaneous
  Country: US (occurrence: US)
  Receive Date: 20241003
  Receipt Date: 20250506
  Transmission Date: 20250716
  Serious: Yes (Life-Threatening, Other)
  Sender: ABBVIE
  Company Number: US-ABBVIE-5939221

PATIENT
  Age: 44 Year
  Sex: Female
  Weight: 68 kg

DRUGS (7)
  1. BOTOX [Suspect]
     Active Substance: ONABOTULINUMTOXINA
     Indication: Skin wrinkling
     Route: 030
     Dates: start: 201907, end: 201907
  2. BOTOX [Suspect]
     Active Substance: ONABOTULINUMTOXINA
     Indication: Skin wrinkling
     Route: 030
     Dates: start: 20190731, end: 20190731
  3. FLUOXETINE [Concomitant]
     Active Substance: FLUOXETINE HYDROCHLORIDE
     Indication: Depression
  4. GABAPENTIN [Concomitant]
     Active Substance: GABAPENTIN
     Indication: Neuropathy peripheral
  5. FLEXERIL [Concomitant]
     Active Substance: CYCLOBENZAPRINE HYDROCHLORIDE
     Indication: Muscle spasms
  6. XANAX [Concomitant]
     Active Substance: ALPRAZOLAM
     Indication: Anxiety
  7. TRIAMCINOLONE [Concomitant]
     Active Substance: TRIAMCINOLONE
     Indication: Skin lesion

REACTIONS (35)
  - Granuloma [Recovering/Resolving]
  - Peripheral swelling [Recovered/Resolved]
  - Neuropathy peripheral [Not Recovered/Not Resolved]
  - Malaise [Unknown]
  - Tooth loss [Not Recovered/Not Resolved]
  - Gingival discomfort [Recovering/Resolving]
  - Blindness [Recovering/Resolving]
  - Tooth loss [Not Recovered/Not Resolved]
  - Facial paresis [Not Recovered/Not Resolved]
  - Transient ischaemic attack [Recovered/Resolved]
  - Feeding disorder [Recovering/Resolving]
  - Foreign body reaction [Recovering/Resolving]
  - COVID-19 [Unknown]
  - Infection [Recovered/Resolved]
  - Abscess oral [Recovered/Resolved]
  - Facial discomfort [Recovering/Resolving]
  - Granuloma skin [Not Recovered/Not Resolved]
  - Parotid gland enlargement [Recovered/Resolved]
  - Balance disorder [Not Recovered/Not Resolved]
  - Tooth loss [Not Recovered/Not Resolved]
  - Pain of skin [Not Recovered/Not Resolved]
  - Swelling [Unknown]
  - Infection [Recovered/Resolved]
  - Abscess oral [Recovered/Resolved]
  - Blindness [Recovering/Resolving]
  - Pain [Recovering/Resolving]
  - Lymphadenopathy [Recovered/Resolved]
  - Surgery [Unknown]
  - Necrosis [Unknown]
  - Foreign body reaction [Unknown]
  - Dysphagia [Unknown]
  - Dyspnoea [Unknown]
  - Oral mucosal discolouration [Unknown]
  - Oral pain [Unknown]
  - Oral disorder [Unknown]

NARRATIVE: CASE EVENT DATE: 20190101
